FAERS Safety Report 17724605 (Version 1)
Quarter: 2020Q2

REPORT INFORMATION
  Report Type: Spontaneous
  Country: CN (occurrence: CN)
  Receive Date: 20200429
  Receipt Date: 20200429
  Transmission Date: 20200714
  Serious: Yes (Hospitalization, Other)
  Sender: FDA-Public Use
  Company Number: CN-GLAXOSMITHKLINE-CN2020APC067273

PATIENT
  Age: 86 Year
  Sex: Male
  Weight: 67 kg

DRUGS (1)
  1. ZINACEF [Suspect]
     Active Substance: CEFUROXIME SODIUM
     Indication: SKIN INFECTION
     Dosage: 250 MG, BID
     Route: 048
     Dates: start: 20200330, end: 20200407

REACTIONS (4)
  - Skin disorder [Recovering/Resolving]
  - Erythema [Recovering/Resolving]
  - Blister [Recovering/Resolving]
  - Pruritus [Recovering/Resolving]

NARRATIVE: CASE EVENT DATE: 20200408
